FAERS Safety Report 6451143-2 (Version None)
Quarter: 2009Q4

REPORT INFORMATION
  Report Type: 
  Country: None (occurrence: None)
  Receive Date: 20091123
  Receipt Date: 20091113
  Transmission Date: 20100525
  Serious: Yes (Hospitalization, Other)
  Sender: FDA-Public Use
  Company Number: AU-PFIZER INC-2009282671

PATIENT
  Age: 55 Year
  Sex: Male

DRUGS (5)
  1. ZELDOX [Suspect]
     Indication: DEPRESSION
     Dosage: 20 MG, 2X/DAY
     Route: 048
     Dates: start: 20090615, end: 20090903
  2. ZELDOX [Suspect]
     Indication: BIPOLAR DISORDER
  3. NARDIL [Suspect]
     Indication: DEPRESSION
     Dosage: 60 MG, 1X/DAY
     Route: 048
     Dates: start: 20090814, end: 20090902
  4. LEXAPRO [Suspect]
     Indication: DEPRESSION
  5. OLANZAPINE [Concomitant]
     Indication: DEPRESSION

REACTIONS (3)
  - ANXIETY [None]
  - BLOOD CREATINE PHOSPHOKINASE INCREASED [None]
  - SEROTONIN SYNDROME [None]
